FAERS Safety Report 16066789 (Version 1)
Quarter: 2019Q1

REPORT INFORMATION
  Report Type: Spontaneous
  Country: US (occurrence: US)
  Receive Date: 20190212
  Receipt Date: 20190212
  Transmission Date: 20190418
  Serious: Yes (Other)
  Sender: FDA-Public Use
  Company Number: None

PATIENT
  Age: 34 Year
  Sex: Female
  Weight: 98.43 kg

DRUGS (1)
  1. GLATIRAMER ACETATE 40MG/ML [Suspect]
     Active Substance: GLATIRAMER ACETATE
     Indication: MULTIPLE SCLEROSIS
     Route: 058
     Dates: start: 20181128, end: 20190206

REACTIONS (4)
  - Pain [None]
  - Urticaria [None]
  - Insurance issue [None]
  - Product substitution issue [None]

NARRATIVE: CASE EVENT DATE: 20181128
